FAERS Safety Report 7931389-4 (Version None)
Quarter: 2011Q4

REPORT INFORMATION
  Report Type: 
  Country: None (occurrence: None)
  Receive Date: 20111121
  Receipt Date: 20111110
  Transmission Date: 20120403
  Serious: Yes (Other)
  Sender: FDA-Public Use
  Company Number: US-JNJFOC-20111104549

PATIENT
  Sex: Male
  Weight: 145.15 kg

DRUGS (12)
  1. LOSARTAN [Concomitant]
     Dates: start: 19960101
  2. NIASPAN [Concomitant]
  3. GABAPENTIN [Concomitant]
  4. CLONIDINE [Concomitant]
  5. PAIN MEDICATION (NOS) [Concomitant]
  6. NASAL SPRAY, NOS [Concomitant]
  7. PROAIR HFA [Concomitant]
  8. REMICADE [Suspect]
     Indication: PSORIATIC ARTHROPATHY
     Route: 042
     Dates: start: 20060101
  9. CLONAZEPAM [Concomitant]
  10. METFORMIN HCL [Concomitant]
     Dates: start: 20060101
  11. REMICADE [Suspect]
     Indication: PSORIASIS
     Route: 042
     Dates: start: 20060101
  12. LOVAZA [Concomitant]
     Dates: start: 20060101

REACTIONS (8)
  - PLATELET COUNT DECREASED [None]
  - LIMB INJURY [None]
  - RASH [None]
  - BLOOD PRESSURE INADEQUATELY CONTROLLED [None]
  - DYSPNOEA [None]
  - INTERVERTEBRAL DISC PROTRUSION [None]
  - NASAL CONGESTION [None]
  - NEUROPATHY PERIPHERAL [None]
